FAERS Safety Report 14137589 (Version 1)
Quarter: 2017Q4

REPORT INFORMATION
  Report Type: Spontaneous
  Country: HR (occurrence: HR)
  Receive Date: 20171027
  Receipt Date: 20171027
  Transmission Date: 20180321
  Serious: Yes (Life-Threatening)
  Sender: FDA-Public Use
  Company Number: HR-TEVA-817541ROM

PATIENT
  Sex: Male

DRUGS (2)
  1. PRAXITEN 15 [Suspect]
     Active Substance: OXAZEPAM
     Dosage: 450 MILLIGRAM DAILY;
     Route: 048
     Dates: start: 20170812, end: 20170812
  2. SANVAL [Suspect]
     Active Substance: ZOLPIDEM TARTRATE
     Dosage: 17 DOSAGE FORMS DAILY;
     Route: 048
     Dates: start: 20170812, end: 20170812

REACTIONS (3)
  - Somnolence [Unknown]
  - Suicide attempt [Unknown]
  - Intentional overdose [Unknown]

NARRATIVE: CASE EVENT DATE: 20170812
